FAERS Safety Report 9251484 (Version 1)
Quarter: 2013Q2

REPORT INFORMATION
  Report Type: Spontaneous
  Country: FR (occurrence: FR)
  Receive Date: 20130424
  Receipt Date: 20130424
  Transmission Date: 20140414
  Serious: Yes (Death, Hospitalization, Other)
  Sender: FDA-Public Use
  Company Number: FR-BRISTOL-MYERS SQUIBB COMPANY-18798579

PATIENT
  Age: 87 Year
  Sex: Female

DRUGS (2)
  1. COUMADIN TABS [Suspect]
     Dosage: SCORED TABLET.
     Route: 048
     Dates: start: 20121112
  2. AMOXICILLINE [Suspect]
     Route: 048
     Dates: start: 20121109, end: 20121112

REACTIONS (4)
  - Sepsis [Fatal]
  - Muscle haemorrhage [Unknown]
  - International normalised ratio increased [Recovered/Resolved]
  - Overdose [Recovered/Resolved]
